FAERS Safety Report 16663105 (Version 1)
Quarter: 2019Q3

REPORT INFORMATION
  Report Type: Spontaneous
  Country: ES (occurrence: ES)
  Receive Date: 20190802
  Receipt Date: 20190802
  Transmission Date: 20191004
  Serious: No
  Sender: FDA-Public Use
  Company Number: ES-EXELIXIS-CABO-19021432

PATIENT
  Age: 63 Year
  Sex: Male

DRUGS (2)
  1. CABOMETYX [Suspect]
     Active Substance: CABOZANTINIB S-MALATE
     Dosage: 60 MG, QD
     Dates: start: 201808
  2. CABOMETYX [Suspect]
     Active Substance: CABOZANTINIB S-MALATE
     Indication: RENAL NEOPLASM
     Dosage: 40 MG, QD
     Dates: start: 20180726

REACTIONS (4)
  - Decreased appetite [Unknown]
  - Dysphonia [Unknown]
  - Diarrhoea [Unknown]
  - Dysgeusia [Unknown]
